FAERS Safety Report 9398233 (Version 1)
Quarter: 2013Q3

REPORT INFORMATION
  Report Type: Spontaneous
  Country: US (occurrence: US)
  Receive Date: 20130712
  Receipt Date: 20130712
  Transmission Date: 20140515
  Serious: Yes (Other)
  Sender: FDA-Public Use
  Company Number: US-GLAXOSMITHKLINE-A0997688A

PATIENT
  Age: 68 Year
  Sex: Female

DRUGS (4)
  1. FLOVENT [Suspect]
     Indication: ASTHMA
     Route: 055
     Dates: start: 20120728
  2. OXYGEN [Suspect]
  3. PROVENTIL [Concomitant]
  4. ARTIFICIAL TEARS [Concomitant]

REACTIONS (6)
  - Corneal disorder [Not Recovered/Not Resolved]
  - Visual impairment [Not Recovered/Not Resolved]
  - Drug administration error [Unknown]
  - Dry eye [Unknown]
  - Malaise [Unknown]
  - Hospitalisation [Unknown]
